FAERS Safety Report 22853282 (Version 3)
Quarter: 2024Q1

REPORT INFORMATION
  Report Type: Spontaneous
  Country: US (occurrence: US)
  Receive Date: 20230823
  Receipt Date: 20240329
  Transmission Date: 20240410
  Serious: Yes (Other)
  Sender: FDA-Public Use
  Company Number: US-ABBVIE-5376496

PATIENT
  Sex: Female

DRUGS (1)
  1. KYBELLA [Suspect]
     Active Substance: DEOXYCHOLIC ACID
     Indication: Lipolysis procedure
     Dosage: TIME INTERVAL: AS NECESSARY: 5ML ON EACH SIDE OF MY BUTTOCKS; 10 MLS SPREAD OUT INTO ONLY 8 INJEC...
     Route: 058

REACTIONS (11)
  - Cerebrovascular accident [Unknown]
  - Swelling [Unknown]
  - Influenza like illness [Unknown]
  - Off label use [Unknown]
  - Lymphadenopathy [Unknown]
  - Cyanosis [Unknown]
  - Malaise [Unknown]
  - Overdose [Unknown]
  - Hypoaesthesia [Unknown]
  - Wrong technique in product usage process [Unknown]
  - Immune-mediated adverse reaction [Unknown]
